FAERS Safety Report 15464767 (Version 2)
Quarter: 2018Q4

REPORT INFORMATION
  Report Type: Spontaneous
  Country: US (occurrence: US)
  Receive Date: 20181004
  Receipt Date: 20181226
  Transmission Date: 20190204
  Serious: Yes (Hospitalization, Other)
  Sender: FDA-Public Use
  Company Number: US-NOVOPROD-624414

PATIENT
  Age: 52 Year
  Sex: Male

DRUGS (2)
  1. LEVEMIR [Suspect]
     Active Substance: INSULIN DETEMIR
     Indication: TYPE 2 DIABETES MELLITUS
     Dosage: 125 UNITS AT BEDTIME
     Route: 058
     Dates: start: 2011
  2. NOVOLOG [Suspect]
     Active Substance: INSULIN ASPART
     Indication: TYPE 2 DIABETES MELLITUS
     Dosage: SLIDING SCALE MAX DAILY DOSE 150 UNITS/DAY
     Route: 058
     Dates: start: 2000

REACTIONS (2)
  - Thrombotic stroke [Recovered/Resolved with Sequelae]
  - Myocardial infarction [Recovered/Resolved]

NARRATIVE: CASE EVENT DATE: 20130723
